FAERS Safety Report 4303350-2 (Version None)
Quarter: 2004Q1

REPORT INFORMATION
  Report Type: 
  Country: None (occurrence: None)
  Receive Date: 20040223
  Receipt Date: 20040217
  Transmission Date: 20041129
  Serious: Yes (Hospitalization)
  Sender: FDA-Public Use
  Company Number: 2004-02-1148

PATIENT
  Age: 21 Year
  Sex: Female

DRUGS (2)
  1. CLARITIN [Suspect]
     Indication: URTICARIA
     Dosage: 10 MG ORAL
     Route: 048
     Dates: start: 20040216
  2. STRONG NEO-MINOPHAGEN C [Suspect]
     Indication: URTICARIA
     Dosage: 20 CC
     Dates: start: 20040216

REACTIONS (1)
  - DYSPNOEA [None]
